FAERS Safety Report 18467589 (Version 1)
Quarter: 2020Q4

REPORT INFORMATION
  Report Type: Spontaneous
  Country: US (occurrence: US)
  Receive Date: 20201103
  Receipt Date: 20201103
  Transmission Date: 20210114
  Serious: Yes (Other)
  Sender: FDA-Public Use
  Company Number: None

PATIENT

DRUGS (1)
  1. SIMPONI [Suspect]
     Active Substance: GOLIMUMAB

REACTIONS (15)
  - Blood pressure increased [None]
  - Body temperature increased [None]
  - Pruritus [None]
  - Fatigue [None]
  - Somnolence [None]
  - Headache [None]
  - Laryngitis [None]
  - Rhinorrhoea [None]
  - Dyspnoea [None]
  - Tinnitus [None]
  - Dizziness [None]
  - Feeling hot [None]
  - Cough [None]
  - Skin disorder [None]
  - Nausea [None]

NARRATIVE: CASE EVENT DATE: 20200711
